FAERS Safety Report 9825929 (Version 1)
Quarter: 2014Q1

REPORT INFORMATION
  Report Type: Spontaneous
  Country: US (occurrence: None)
  Receive Date: 20140115
  Receipt Date: 20140115
  Transmission Date: 20141002
  Serious: Yes (Other)
  Sender: FDA-Public Use
  Company Number: US-ZYDUS-002466

PATIENT
  Age: 56 Year
  Sex: Female

DRUGS (5)
  1. WARFARIN (WARFARIN) [Suspect]
  2. BISMUTH SALICYLATE (BISMUTH SALICYLATE) [Suspect]
     Indication: DIARRHOEA
     Dosage: 4.00 TIMES PER-1.0HOURS
  3. ENOXAPARIN [Concomitant]
  4. SODIUM(ENOXAPARIN SODIUM) [Concomitant]
  5. LOPERAMIDE(LOPERAMIDE) [Concomitant]

REACTIONS (3)
  - Potentiating drug interaction [None]
  - Post procedural haemorrhage [None]
  - International normalised ratio increased [None]
